FAERS Safety Report 24252387 (Version 1)
Quarter: 2024Q3

REPORT INFORMATION
  Report Type: Spontaneous
  Country: BR (occurrence: BR)
  Receive Date: 20240827
  Receipt Date: 20240827
  Transmission Date: 20241016
  Serious: Yes (Hospitalization, Other)
  Sender: Phathom Pharmaceuticals
  Company Number: BR-PHATHOM PHARMACEUTICALS INC.-2024PHT00746

PATIENT
  Sex: Female

DRUGS (1)
  1. VONOPRAZAN FUMARATE [Suspect]
     Active Substance: VONOPRAZAN FUMARATE
     Indication: Abdominal discomfort
     Dosage: 20 MG, 1X/DAY
     Route: 048

REACTIONS (11)
  - Near death experience [Unknown]
  - Rebound effect [Unknown]
  - Abdominal pain upper [Unknown]
  - Labyrinthitis [Unknown]
  - Blood pressure decreased [Unknown]
  - Feeling cold [Unknown]
  - Dyspnoea [Unknown]
  - Oxygen saturation abnormal [Unknown]
  - Vomiting [Unknown]
  - Discomfort [Unknown]
  - Nausea [Unknown]
